FAERS Safety Report 10027096 (Version 2)
Quarter: 2014Q1

REPORT INFORMATION
  Report Type: Spontaneous
  Country: US (occurrence: US)
  Receive Date: 20140321
  Receipt Date: 20140321
  Transmission Date: 20141002
  Serious: No
  Sender: FDA-Public Use
  Company Number: US-MYLANLABS-2013S1005848

PATIENT
  Age: 59 Year
  Sex: Female
  Weight: 73.09 kg

DRUGS (2)
  1. ESTRADIOL TRANSDERMAL SYSTEM, USP [Suspect]
     Indication: HORMONE REPLACEMENT THERAPY
     Dosage: CHANGE WEEKLY
     Route: 062
     Dates: start: 2012, end: 2013
  2. ESTRADIOL TRANSDERMAL SYSTEM, USP [Suspect]
     Indication: MENOPAUSE
     Dosage: CHANGE WEEKLY
     Route: 062
     Dates: start: 2012, end: 2013

REACTIONS (4)
  - Application site rash [Recovering/Resolving]
  - Application site pruritus [Recovering/Resolving]
  - Application site dryness [Recovering/Resolving]
  - Rash maculo-papular [Not Recovered/Not Resolved]
